FAERS Safety Report 7794276-0 (Version None)
Quarter: 2011Q4

REPORT INFORMATION
  Report Type: 
  Country: None (occurrence: None)
  Receive Date: 20111004
  Receipt Date: 20110927
  Transmission Date: 20120403
  Serious: Yes (Hospitalization, Other)
  Sender: FDA-Public Use
  Company Number: US-AMGEN-USASP2011049993

PATIENT
  Sex: Male

DRUGS (1)
  1. ENBREL [Suspect]
     Indication: PSORIASIS
     Dosage: 50 MG, QWK
     Dates: start: 20040601

REACTIONS (6)
  - SPINAL DISORDER [None]
  - SPINAL OPERATION [None]
  - CHONDROPATHY [None]
  - NASAL ULCER [None]
  - STOMATITIS [None]
  - PALATAL DISORDER [None]
